FAERS Safety Report 16355188 (Version 1)
Quarter: 2019Q2

REPORT INFORMATION
  Report Type: Spontaneous
  Country: GB (occurrence: GB)
  Receive Date: 20190524
  Receipt Date: 20190524
  Transmission Date: 20190711
  Serious: Yes (Other)
  Sender: FDA-Public Use
  Company Number: GB-TEVA-2019-GB-1053611

PATIENT
  Age: 4 Month
  Sex: Female
  Weight: 2.6 kg

DRUGS (4)
  1. OMEPRAZOLE. [Concomitant]
     Active Substance: OMEPRAZOLE
  2. CHLORAL HYDRATE [Concomitant]
     Active Substance: CHLORAL HYDRATE
  3. DOMPERIDONE [Concomitant]
     Active Substance: DOMPERIDONE
  4. LACTULOSE. [Suspect]
     Active Substance: LACTULOSE
     Indication: CONSTIPATION
     Route: 048

REACTIONS (3)
  - Haematochezia [Unknown]
  - Discomfort [Unknown]
  - Colitis [Recovered/Resolved]
